FAERS Safety Report 15532969 (Version 1)
Quarter: 2018Q4

REPORT INFORMATION
  Report Type: Spontaneous
  Country: US (occurrence: US)
  Receive Date: 20181019
  Receipt Date: 20181019
  Transmission Date: 20190205
  Serious: No
  Sender: FDA-Public Use
  Company Number: US-ALLERGAN-1839005US

PATIENT
  Sex: Male

DRUGS (1)
  1. INFED [Suspect]
     Active Substance: IRON DEXTRAN
     Indication: IRON DEFICIENCY
     Dosage: 0.5 ML, SINGLE
     Route: 030
     Dates: start: 20171222, end: 20171222

REACTIONS (2)
  - Injection site bruising [Not Recovered/Not Resolved]
  - Product administered at inappropriate site [Unknown]
